FAERS Safety Report 13491646 (Version 1)
Quarter: 2017Q2

REPORT INFORMATION
  Report Type: Spontaneous
  Country: JP (occurrence: JP)
  Receive Date: 20170427
  Receipt Date: 20170427
  Transmission Date: 20170830
  Serious: Yes (Other)
  Sender: FDA-Public Use
  Company Number: JP-ACCORD-050863

PATIENT
  Age: 3 Decade
  Weight: 69 kg

DRUGS (3)
  1. TACROLIMUS. [Suspect]
     Active Substance: TACROLIMUS
     Indication: COLITIS ULCERATIVE
  2. PREDNISOLONE. [Concomitant]
     Active Substance: PREDNISOLONE
     Indication: COLITIS ULCERATIVE
     Dosage: GRADUALLY DECREASED TO 50 MG/DAY AT DAY 6, 40 MG/DAY AT DAY 11, AND 30 MG/DAY AT DAY 16
  3. AMINOSALICYLATE CALCIUM/AMINOSALICYLATE CALCIUM ALUMIN/AMINOSALICYLATE SODIUM/AMINOSALICYLIC ACID [Concomitant]
     Indication: COLITIS ULCERATIVE

REACTIONS (2)
  - Off label use [Unknown]
  - Large intestinal ulcer [Recovered/Resolved]
